FAERS Safety Report 10715774 (Version 1)
Quarter: 2015Q1

REPORT INFORMATION
  Report Type: Spontaneous
  Country: US (occurrence: None)
  Receive Date: 20150108
  Receipt Date: 20150108
  Transmission Date: 20150721
  Serious: Yes (Other)
  Sender: FDA-Public Use
  Company Number: 422488

PATIENT
  Sex: Female
  Weight: 88 kg

DRUGS (2)
  1. GLIPIZIDE. [Suspect]
     Active Substance: GLIPIZIDE
     Indication: DIABETES MELLITUS
     Route: 048
     Dates: start: 20120802
  2. LEVEMIR [Suspect]
     Active Substance: INSULIN DETEMIR
     Indication: DIABETES MELLITUS
     Dosage: 20 U,QHS, SUBCUTANEOUS
     Route: 058
     Dates: start: 20140903, end: 20140924

REACTIONS (2)
  - Angioedema [None]
  - Urticaria [None]

NARRATIVE: CASE EVENT DATE: 201409
